FAERS Safety Report 8839655 (Version 1)
Quarter: 2012Q4

REPORT INFORMATION
  Report Type: Spontaneous
  Country: AT (occurrence: None)
  Receive Date: 20121011
  Receipt Date: 20121011
  Transmission Date: 20130627
  Serious: Yes (Other)
  Sender: FDA-Public Use
  Company Number: 1438519

PATIENT
  Age: 63 Year
  Sex: Female

DRUGS (1)
  1. PACLITAXEL [Suspect]
     Dates: start: 20120907, end: 20120907

REACTIONS (6)
  - Hypotension [None]
  - Dizziness [None]
  - Nausea [None]
  - Respiratory distress [None]
  - Abdominal pain upper [None]
  - Tachycardia [None]
